FAERS Safety Report 6597617-5 (Version None)
Quarter: 2010Q1

REPORT INFORMATION
  Report Type: 
  Country: None (occurrence: None)
  Receive Date: 20100223
  Receipt Date: 20100212
  Transmission Date: 20100710
  Serious: Yes (Death, Hospitalization)
  Sender: FDA-Public Use
  Company Number: GB-PFIZER INC-2007022665

PATIENT
  Age: 30 Month
  Sex: Male

DRUGS (6)
  1. EPIRUBICIN HYDROCHLORIDE [Suspect]
     Indication: RHABDOMYOSARCOMA
     Dosage: 150 MG/M2, UNK
  2. VINCRISTINE SULFATE [Suspect]
     Indication: RHABDOMYOSARCOMA
  3. CARBOPLATIN [Concomitant]
     Indication: RHABDOMYOSARCOMA
  4. ETOPOSIDE [Concomitant]
     Indication: RHABDOMYOSARCOMA
  5. IFOSFAMIDE [Concomitant]
     Indication: RHABDOMYOSARCOMA
  6. ACTINOMYCIN D [Concomitant]
     Indication: RHABDOMYOSARCOMA

REACTIONS (1)
  - INTERSTITIAL LUNG DISEASE [None]
